FAERS Safety Report 8011092-5 (Version None)
Quarter: 2011Q4

REPORT INFORMATION
  Report Type: 
  Country: None (occurrence: None)
  Receive Date: 20111228
  Receipt Date: 20111207
  Transmission Date: 20120403
  Serious: Yes (Hospitalization, Disabling)
  Sender: FDA-Public Use
  Company Number: JP-ROCHE-GNE317662

PATIENT
  Age: 69 Year
  Sex: Male

DRUGS (10)
  1. RADICUT [Concomitant]
     Dosage: 30 MG, BID
     Dates: start: 20101003, end: 20101014
  2. ANTI HYPERTENSIVE MEDS [Concomitant]
     Indication: PRODUCT USED FOR UNKNOWN INDICATION
  3. RADICUT [Concomitant]
     Dosage: 30 MG, QD
     Dates: start: 20101002, end: 20101002
  4. ACTIVASE [Suspect]
     Indication: EMBOLIC STROKE
     Dosage: 39.6 ML, QD
     Route: 042
     Dates: start: 20101001, end: 20101001
  5. FAMOTIDINE [Concomitant]
     Dates: start: 20101001, end: 20101001
  6. RADICUT [Concomitant]
     Indication: PRODUCT USED FOR UNKNOWN INDICATION
     Dosage: 30 MG, BID
     Dates: start: 20101001, end: 20101001
  7. WARFARIN SODIUM [Concomitant]
     Indication: PRODUCT USED FOR UNKNOWN INDICATION
     Dosage: UNK
     Route: 048
     Dates: start: 20101007
  8. VASODILATOR [Concomitant]
     Indication: PRODUCT USED FOR UNKNOWN INDICATION
  9. GLYCEOL [Concomitant]
     Indication: PRODUCT USED FOR UNKNOWN INDICATION
     Dosage: UNK
     Dates: start: 20101001, end: 20101019
  10. NICARDIPINE HCL [Concomitant]
     Dates: start: 20101001, end: 20101001

REACTIONS (2)
  - CEREBRAL HAEMORRHAGE [None]
  - PNEUMONIA [None]
